FAERS Safety Report 8786640 (Version 1)
Quarter: 2012Q4

REPORT INFORMATION
  Report Type: 
  Country: US (occurrence: US)
  Receive Date: 20120914
  Receipt Date: 20120914
  Transmission Date: 20130627
  Serious: Yes (Other)
  Sender: FDA-Public Use
  Company Number: PHHY2012US079124

PATIENT
  Age: 36 Year
  Sex: Male

DRUGS (1)
  1. AMPHETAMINE SULFATE\DEXTROAMPHETAMINE [Suspect]
     Indication: NARCOLEPSY
     Dosage: 5 mg, BID

REACTIONS (5)
  - Parkinson^s disease [Unknown]
  - Bradykinesia [Unknown]
  - Tremor [Unknown]
  - Muscle rigidity [Unknown]
  - Facial paresis [None]
